FAERS Safety Report 24591987 (Version 1)
Quarter: 2024Q4

REPORT INFORMATION
  Report Type: Spontaneous
  Country: US (occurrence: US)
  Receive Date: 20241108
  Receipt Date: 20241108
  Transmission Date: 20250115
  Serious: Yes (Hospitalization)
  Sender: CATALYST PHARMA
  Company Number: US-CATALYST PHARMACEUTICALS, INC-US-CATA-24-01271

PATIENT
  Age: 82 Year
  Sex: Male
  Weight: 81.633 kg

DRUGS (14)
  1. FIRDAPSE [Suspect]
     Active Substance: AMIFAMPRIDINE PHOSPHATE
     Indication: Myasthenic syndrome
     Dosage: 2 TABLETS FOUR TIMES A DAY
     Route: 048
     Dates: start: 20190220
  2. ALENDRONATE [Concomitant]
     Active Substance: ALENDRONATE SODIUM
     Indication: Osteoporosis
     Dosage: 70 MG TABLET ONE WEEKLY
     Route: 065
  3. ASPIRIN [Concomitant]
     Active Substance: ASPIRIN
     Indication: Cardiovascular event prophylaxis
     Dosage: 81 MG ONE DAILY
     Route: 065
  4. CALCIUM [Concomitant]
     Active Substance: CALCIUM
     Indication: Osteoporosis
     Dosage: 600 MG ONE DAILY
     Route: 065
  5. FAMOTIDINE [Concomitant]
     Active Substance: FAMOTIDINE
     Indication: Gastrooesophageal reflux disease
     Dosage: 20 MG ONE TABLET TWICE A DAY
     Route: 065
  6. CEVIMELINE [Concomitant]
     Active Substance: CEVIMELINE
     Indication: Dry mouth
     Dosage: 30 MG ONE THREE TIMES A DAY
     Route: 065
  7. LEVOTHYROXINE [Concomitant]
     Active Substance: LEVOTHYROXINE
     Indication: Hypothyroidism
     Dosage: 75 MCG ONE DAILY
     Route: 065
  8. MEN^S MULTIVITAMIN [Concomitant]
     Indication: Hypovitaminosis
     Dosage: ONE DAILY
     Route: 065
  9. POTASSIUM CHLORIDE [Concomitant]
     Active Substance: POTASSIUM CHLORIDE
     Indication: Product used for unknown indication
     Dosage: 10 MEQ ONE DAILY
     Route: 065
  10. SIMVASTATIN [Concomitant]
     Active Substance: SIMVASTATIN
     Indication: Hypercholesterolaemia
     Dosage: 40 MG ONE AT BEDTIME
     Route: 065
  11. SERTRALINE [Concomitant]
     Active Substance: SERTRALINE HYDROCHLORIDE
     Indication: Depression
     Dosage: 50 MG ONE DAILY
     Route: 065
  12. FISH OIL [Concomitant]
     Active Substance: FISH OIL
     Indication: Product used for unknown indication
     Dosage: 435 MG ONE DAILY
     Route: 065
  13. PREDNISONE [Concomitant]
     Active Substance: PREDNISONE
     Indication: Product used for unknown indication
     Dosage: THREE TABLETS DAILY
     Route: 065
  14. PYRIDOSTIGMINE [Concomitant]
     Active Substance: PYRIDOSTIGMINE
     Indication: Myasthenic syndrome
     Dosage: 30MG TWICE A DAY
     Route: 065

REACTIONS (2)
  - Iron metabolism disorder [Recovered/Resolved]
  - Transfusion [Recovered/Resolved]

NARRATIVE: CASE EVENT DATE: 20241001
